FAERS Safety Report 13439448 (Version 2)
Quarter: 2017Q4

REPORT INFORMATION
  Report Type: Report from Study
  Country: IT (occurrence: IT)
  Receive Date: 20170412
  Receipt Date: 20171020
  Transmission Date: 20180320
  Serious: Yes (Hospitalization)
  Sender: FDA-Public Use
  Company Number: IT-ROCHE-1914210

PATIENT
  Age: 69 Year
  Sex: Female

DRUGS (11)
  1. RITUXIMAB. [Suspect]
     Active Substance: RITUXIMAB
     Indication: HAEMATOLOGICAL MALIGNANCY
     Dosage: CONCENTRATE FOR SOLUTION FOR INJECTION
     Route: 042
     Dates: start: 20170124, end: 20170124
  2. APREPITANT. [Concomitant]
     Active Substance: APREPITANT
     Indication: VOMITING
     Dosage: PERIOD: 2 DAYS
     Route: 048
     Dates: start: 20170124, end: 20170126
  3. LIPEGFILGRASTIM [Suspect]
     Active Substance: LIPEGFILGRASTIM
     Indication: PROPHYLAXIS
     Route: 058
     Dates: start: 20170128, end: 20170128
  4. DEXAMETHASONE. [Concomitant]
     Active Substance: DEXAMETHASONE
     Indication: INFLAMMATION
     Dosage: PERIOD: 2 DAYS
     Route: 042
     Dates: start: 20170124, end: 20170126
  5. MESNA. [Concomitant]
     Active Substance: MESNA
     Route: 042
     Dates: start: 20170124, end: 20170126
  6. PALONOSETRON HYDROCHLORIDE. [Concomitant]
     Active Substance: PALONOSETRON HYDROCHLORIDE
     Indication: VOMITING
     Dosage: PERIOD: 2 DAYS
     Route: 042
     Dates: start: 20170124, end: 20170126
  7. CHLORPHENAMINE MALEATE [Concomitant]
     Active Substance: CHLORPHENIRAMINE MALEATE
     Indication: HISTAMINE LEVEL INCREASED
     Route: 042
     Dates: start: 20170124
  8. IFOSFAMIDE. [Suspect]
     Active Substance: IFOSFAMIDE
     Indication: CHEMOTHERAPY
     Dosage: PERIOD: 2 DAYS?SOLUTION FOR INTRAVENOUS INFUSION
     Route: 042
     Dates: start: 20170124, end: 20170126
  9. EPIRUBICIN HYDROCHLORIDE. [Suspect]
     Active Substance: EPIRUBICIN HYDROCHLORIDE
     Indication: CHEMOTHERAPY
     Route: 042
     Dates: start: 20170124, end: 20170124
  10. ETOPOSIDE. [Suspect]
     Active Substance: ETOPOSIDE
     Indication: CHEMOTHERAPY
     Dosage: CONCENTRATE FOR SOLUTION FOR INTRAVENOUS INFUSION
     Route: 042
     Dates: start: 20170124, end: 20170126
  11. RANITIDINE HYDROCHLORIDE. [Concomitant]
     Active Substance: RANITIDINE HYDROCHLORIDE
     Indication: HYPERCHLORHYDRIA
     Dosage: PERIOD: 2 DAYS
     Route: 042
     Dates: start: 20170124, end: 20170126

REACTIONS (4)
  - Pyrexia [Recovered/Resolved]
  - Mucosal infection [Recovered/Resolved]
  - Dysphagia [Recovered/Resolved]
  - Odynophagia [Recovered/Resolved]

NARRATIVE: CASE EVENT DATE: 20170202
